FAERS Safety Report 26083089 (Version 1)
Quarter: 2025Q4

REPORT INFORMATION
  Report Type: Spontaneous
  Country: US (occurrence: None)
  Receive Date: 20251124
  Receipt Date: 20251124
  Transmission Date: 20260118
  Serious: Yes (Other)
  Sender: FDA-CTU
  Company Number: None

PATIENT
  Age: 34 Year
  Sex: Female
  Weight: 51.3 kg

DRUGS (1)
  1. TEPEZZA [Suspect]
     Active Substance: TEPROTUMUMAB-TRBW
     Indication: Endocrine ophthalmopathy
     Dosage: 1047 MG EVERY 3 WEEKS INTRAVENOUS DRIP
     Route: 041
     Dates: start: 20251014

REACTIONS (3)
  - Dysmenorrhoea [None]
  - Heavy menstrual bleeding [None]
  - Menstruation delayed [None]

NARRATIVE: CASE EVENT DATE: 20251118
